FAERS Safety Report 9404014 (Version 2)
Quarter: 2013Q3

REPORT INFORMATION
  Report Type: Spontaneous
  Country: US (occurrence: US)
  Receive Date: 20130717
  Receipt Date: 20130911
  Transmission Date: 20140515
  Serious: No
  Sender: FDA-Public Use
  Company Number: US-BIOGENIDEC-2013BI064846

PATIENT
  Sex: Female

DRUGS (1)
  1. TYSABRI [Suspect]
     Indication: MULTIPLE SCLEROSIS
     Route: 042
     Dates: start: 20120829

REACTIONS (7)
  - Weight decreased [Unknown]
  - Sinus congestion [Unknown]
  - Anxiety [Unknown]
  - Platelet count increased [Unknown]
  - Asthenia [Unknown]
  - Alopecia [Not Recovered/Not Resolved]
  - Nasopharyngitis [Unknown]
